FAERS Safety Report 19768121 (Version 1)
Quarter: 2021Q3

REPORT INFORMATION
  Report Type: Spontaneous
  Country: AT (occurrence: AT)
  Receive Date: 20210831
  Receipt Date: 20210831
  Transmission Date: 20211014
  Serious: Yes (Life-Threatening, Other)
  Sender: FDA-Public Use
  Company Number: AT-TEVA-2021-AT-1945702

PATIENT
  Sex: Male

DRUGS (2)
  1. PREGABALIN KRKA 300 MG HARTKAPSELN [Suspect]
     Active Substance: PREGABALIN
     Indication: NEURALGIA
     Dosage: STOP PREGABALIN SLOWLY IN SMALL STEPS
     Dates: start: 2020, end: 2020
  2. PREGABALIN. [Suspect]
     Active Substance: PREGABALIN
     Indication: NEURALGIA
     Dosage: DIDN^T KNOW ANY OTHER WAY OUT THAN TO START OR TRY AGAIN ON PREGABALIN (AFTER 10 MONTHS)
     Route: 065

REACTIONS (15)
  - Photopsia [Not Recovered/Not Resolved]
  - Facial discomfort [Not Recovered/Not Resolved]
  - Micturition disorder [Not Recovered/Not Resolved]
  - Visual impairment [Not Recovered/Not Resolved]
  - Family stress [Not Recovered/Not Resolved]
  - Penis disorder [Not Recovered/Not Resolved]
  - Suicidal ideation [Not Recovered/Not Resolved]
  - Paraesthesia [Not Recovered/Not Resolved]
  - Hypoacusis [Not Recovered/Not Resolved]
  - Mood swings [Not Recovered/Not Resolved]
  - Jaw disorder [Not Recovered/Not Resolved]
  - Confusional state [Not Recovered/Not Resolved]
  - Muscle spasms [Not Recovered/Not Resolved]
  - Sensory disturbance [Not Recovered/Not Resolved]
  - Hypoaesthesia oral [Not Recovered/Not Resolved]

NARRATIVE: CASE EVENT DATE: 2020
